FAERS Safety Report 7151759-4 (Version None)
Quarter: 2010Q4

REPORT INFORMATION
  Report Type: 
  Country: None (occurrence: None)
  Receive Date: 20101210
  Receipt Date: 20101207
  Transmission Date: 20110411
  Serious: Yes (Hospitalization)
  Sender: FDA-Public Use
  Company Number: DK-PFIZER INC-2010166668

PATIENT
  Sex: Male

DRUGS (4)
  1. SOMATROPIN [Suspect]
     Indication: ADENOMA BENIGN
     Dosage: 0.6 MG, 1X/DAY
     Dates: start: 19931102
  2. HYDROCORTISONE [Concomitant]
     Dosage: 20 MG, 1X/DAY
     Route: 048
     Dates: start: 20081002
  3. ELTROXIN [Concomitant]
     Dosage: 200 UG, 1X/DAY
     Route: 048
     Dates: start: 19760715
  4. TESTOSTERONE [Concomitant]
     Dosage: 250 MG, EVERY 17 DAY
     Dates: start: 19760715

REACTIONS (1)
  - BLOOD CORTISOL DECREASED [None]
